FAERS Safety Report 21017097 (Version 1)
Quarter: 2022Q2

REPORT INFORMATION
  Report Type: Spontaneous
  Country: US (occurrence: None)
  Receive Date: 20220627
  Receipt Date: 20220627
  Transmission Date: 20220721
  Serious: Yes (Hospitalization)
  Sender: FDA-Public Use
  Company Number: None

PATIENT
  Age: 45 Year
  Sex: Female
  Weight: 96.75 kg

DRUGS (2)
  1. VENOFER [Suspect]
     Active Substance: IRON SUCROSE
     Indication: Iron deficiency anaemia
     Dosage: OTHER FREQUENCY : 3 X 2 WEEKS;?
     Route: 042
     Dates: start: 20220504, end: 20220622
  2. FEOSOL IRON SUPPLEMENT [Concomitant]

REACTIONS (14)
  - Dyspnoea [None]
  - Abdominal distension [None]
  - Abdominal pain upper [None]
  - Injection site pruritus [None]
  - Myalgia [None]
  - Arthralgia [None]
  - Insomnia [None]
  - Joint swelling [None]
  - Peripheral swelling [None]
  - Arthralgia [None]
  - Infusion related reaction [None]
  - Dyspepsia [None]
  - Hypophagia [None]
  - Feeling abnormal [None]

NARRATIVE: CASE EVENT DATE: 20220622
